FAERS Safety Report 8776463 (Version 7)
Quarter: 2012Q4

REPORT INFORMATION
  Report Type: Report from Study
  Country: US (occurrence: US)
  Receive Date: 20120910
  Receipt Date: 20121115
  Transmission Date: 20130627
  Serious: Yes (Hospitalization, Other)
  Sender: FDA-Public Use
  Company Number: US-JNJFOC-20120901706

PATIENT
  Age: 14 None
  Sex: Female
  Weight: 27.6 kg

DRUGS (4)
  1. REMICADE [Suspect]
     Indication: CROHN^S DISEASE
     Dosage: Noted as administered to APR-2012, and ^discontinued^ on 17-MAY-2012.
     Route: 042
     Dates: start: 20111111, end: 201204
  2. PROBIOTICS [Concomitant]
  3. PREDNISONE [Concomitant]
  4. HUMIRA [Concomitant]

REACTIONS (4)
  - Crohn^s disease [Recovered/Resolved]
  - Gastrointestinal haemorrhage [Recovered/Resolved]
  - Malnutrition [Recovered/Resolved with Sequelae]
  - Abdominal abscess [Recovered/Resolved]
